FAERS Safety Report 5948079-X (Version None)
Quarter: 2008Q4

REPORT INFORMATION
  Report Type: 
  Country: None (occurrence: None)
  Receive Date: 20081107
  Receipt Date: 20081022
  Transmission Date: 20090506
  Serious: Yes (Death)
  Sender: FDA-Public Use
  Company Number: 8037845

PATIENT
  Sex: Male

DRUGS (11)
  1. PREDNISOLONE [Suspect]
     Dates: start: 20060201, end: 20060421
  2. BEVACIZUMAB [Suspect]
     Dates: start: 20050331, end: 20070101
  3. CARMUSTINE [Suspect]
  4. CHLORAMBUCIL [Suspect]
     Indication: NON-HODGKIN'S LYMPHOMA UNSPECIFIED HISTOLOGY INDOLENT STAGE III
     Dates: start: 20010901
  5. CYCLOPHOSPHAMIDE [Suspect]
     Dates: start: 20060201, end: 20060421
  6. CYTARABINE [Suspect]
  7. ETOPOSIDE [Suspect]
  8. METHOTREXATE [Suspect]
  9. RITUXIMAB [Suspect]
     Dates: start: 20050331, end: 20070101
  10. VINCRISTINE [Suspect]
     Dates: start: 20060201, end: 20060421
  11. ZEVALIN [Suspect]
     Dosage: 0.4 ?CI
     Dates: start: 20050407

REACTIONS (1)
  - ACUTE MYELOID LEUKAEMIA [None]
